FAERS Safety Report 4281794-5 (Version None)
Quarter: 2004Q1

REPORT INFORMATION
  Report Type: 
  Country: None (occurrence: None)
  Receive Date: 20040128
  Receipt Date: 20040115
  Transmission Date: 20041129
  Serious: Yes (Death, Hospitalization)
  Sender: FDA-Public Use
  Company Number: HQWYE388915JAN04

PATIENT
  Age: 41 Year
  Sex: Female

DRUGS (1)
  1. EFFEXOR [Suspect]
     Indication: DEPRESSION
     Dosage: UNKNOWN AMOUNT OF 75 MG TABLETS (OVERDOSE AMOUNT)
     Route: 048

REACTIONS (4)
  - CARDIO-RESPIRATORY ARREST [None]
  - HEPATIC STEATOSIS [None]
  - LOSS OF CONSCIOUSNESS [None]
  - OVERDOSE [None]
